FAERS Safety Report 7086950-9 (Version None)
Quarter: 2010Q4

REPORT INFORMATION
  Report Type: 
  Country: None (occurrence: None)
  Receive Date: 20101106
  Receipt Date: 20100903
  Transmission Date: 20110411
  Serious: Yes (Other)
  Sender: FDA-Public Use
  Company Number: US-WYE-H17293010

PATIENT
  Sex: Female

DRUGS (2)
  1. RAPAMUNE [Suspect]
  2. CELLCEPT [Concomitant]

REACTIONS (2)
  - ALOPECIA [None]
  - OEDEMA PERIPHERAL [None]
